FAERS Safety Report 25244953 (Version 1)
Quarter: 2025Q2

REPORT INFORMATION
  Report Type: Spontaneous
  Country: US (occurrence: None)
  Receive Date: 20250425
  Receipt Date: 20250425
  Transmission Date: 20250716
  Serious: Yes (Death)
  Sender: FDA-CTU
  Company Number: None

PATIENT
  Age: 89 Year
  Sex: Female
  Weight: 71.7 kg

DRUGS (11)
  1. CYLTEZO [Suspect]
     Active Substance: ADALIMUMAB-ADBM
     Indication: Crohn^s disease
     Route: 058
     Dates: start: 20240319, end: 20250227
  2. DONEPEZIL HYDROCHLORIDE [Concomitant]
     Active Substance: DONEPEZIL HYDROCHLORIDE
  3. DILTIAZEM [Concomitant]
     Active Substance: DILTIAZEM
  4. ONDANSETRON [Concomitant]
     Active Substance: ONDANSETRON
  5. DULOXETINE [Concomitant]
     Active Substance: DULOXETINE
  6. Oxycodone 10 mg [Concomitant]
  7. ipratropium/albuterol 0.5/3mg [Concomitant]
  8. PROCHLORPERAZINE [Concomitant]
     Active Substance: PROCHLORPERAZINE
  9. levothyroxine 0.05 mg [Concomitant]
  10. vitamin d3 2000 units [Concomitant]
  11. VITAMIN D3 [Concomitant]
     Active Substance: CHOLECALCIFEROL

REACTIONS (1)
  - Death [None]
